FAERS Safety Report 11462834 (Version 1)
Quarter: 2015Q3

REPORT INFORMATION
  Report Type: Spontaneous
  Country: US (occurrence: US)
  Receive Date: 20150831
  Receipt Date: 20150831
  Transmission Date: 20151125
  Serious: Yes (Other)
  Sender: FDA-Public Use
  Company Number: US-ELI_LILLY_AND_COMPANY-US201101007095

PATIENT
  Sex: Female

DRUGS (1)
  1. CYMBALTA [Suspect]
     Active Substance: DULOXETINE HYDROCHLORIDE
     Indication: DEPRESSION
     Dosage: 60 MG, DAILY (1/D)
     Dates: start: 2001

REACTIONS (7)
  - Withdrawal syndrome [Unknown]
  - Eye disorder [Recovering/Resolving]
  - Glaucoma [Not Recovered/Not Resolved]
  - Malaise [Unknown]
  - Miosis [Recovering/Resolving]
  - Medication error [Recovered/Resolved]
  - Photophobia [Recovering/Resolving]
